FAERS Safety Report 24601113 (Version 1)
Quarter: 2024Q4

REPORT INFORMATION
  Report Type: Spontaneous
  Country: US (occurrence: US)
  Receive Date: 20241110
  Receipt Date: 20241110
  Transmission Date: 20250114
  Serious: Yes (Death, Hospitalization, Other)
  Sender: JOHNSON AND JOHNSON
  Company Number: US-JNJFOC-20241108663

PATIENT
  Age: 75 Year
  Sex: Female

DRUGS (1)
  1. CARVYKTI [Suspect]
     Active Substance: CILTACABTAGENE AUTOLEUCEL
     Indication: Product used for unknown indication
     Route: 065
     Dates: start: 20230612

REACTIONS (9)
  - Shock [Fatal]
  - Gastrointestinal disorder [Unknown]
  - Intestinal pseudo-obstruction [Unknown]
  - Intestinal ischaemia [Unknown]
  - Thrombocytopenia [Unknown]
  - Subdural haematoma [Unknown]
  - Hypogammaglobulinaemia [Unknown]
  - Haemorrhage [Unknown]
  - Chronic obstructive pulmonary disease [Unknown]
